FAERS Safety Report 7785723-9 (Version None)
Quarter: 2011Q3

REPORT INFORMATION
  Report Type: 
  Country: None (occurrence: None)
  Receive Date: 20110929
  Receipt Date: 20110923
  Transmission Date: 20111222
  Serious: Yes (Death, Hospitalization)
  Sender: FDA-Public Use
  Company Number: DE-ASTELLAS-2011EU006246

PATIENT
  Age: 55 Year
  Sex: Male
  Weight: 90 kg

DRUGS (3)
  1. MICAFUNGIN INJECTION [Suspect]
     Indication: OESOPHAGEAL CANDIDIASIS
     Dosage: 100 MG, UNKNOWN/D
     Route: 065
     Dates: start: 20110524, end: 20110531
  2. HYDROCORTISONE [Concomitant]
     Dosage: UNK
     Route: 065
     Dates: start: 20110524, end: 20110531
  3. HEPARIN [Concomitant]
     Dosage: UNK
     Route: 065
     Dates: start: 20110525, end: 20110531

REACTIONS (1)
  - MULTI-ORGAN FAILURE [None]
